FAERS Safety Report 23378078 (Version 1)
Quarter: 2024Q1

REPORT INFORMATION
  Report Type: Spontaneous
  Country: CN (occurrence: None)
  Receive Date: 20240108
  Receipt Date: 20240108
  Transmission Date: 20240410
  Serious: Yes (Hospitalization)
  Sender: FDA-Public Use
  Company Number: CN-ROCHE-3482638

PATIENT
  Age: 79 Year
  Sex: Male
  Weight: 67.6 kg

DRUGS (2)
  1. AVASTIN [Suspect]
     Active Substance: BEVACIZUMAB
     Indication: Hepatic cancer
     Route: 041
     Dates: start: 20230627, end: 20230627
  2. TECENTRIQ [Suspect]
     Active Substance: ATEZOLIZUMAB
     Indication: Hepatic cancer
     Route: 041
     Dates: start: 20230627, end: 20230627

REACTIONS (1)
  - Peripheral nerve injury [Recovering/Resolving]

NARRATIVE: CASE EVENT DATE: 20230705
